FAERS Safety Report 6906245-0 (Version None)
Quarter: 2010Q3

REPORT INFORMATION
  Report Type: 
  Country: None (occurrence: None)
  Receive Date: 20100802
  Receipt Date: 20100720
  Transmission Date: 20110219
  Serious: Yes (Death)
  Sender: FDA-Public Use
  Company Number: 009577

PATIENT
  Age: 65 Year
  Sex: Male

DRUGS (8)
  1. SAMSCA [Suspect]
     Indication: HYPONATRAEMIA
     Dosage: 15 MG, ORAL
     Route: 048
     Dates: start: 20100405, end: 20100616
  2. DIURETICS [Concomitant]
  3. ENALAPRIL MALEATE [Concomitant]
  4. CARVEDILOL (CARVEDILOL) TABLET [Concomitant]
  5. ACENOCOUMAROL (ACENOCOUMAROL) TABLET [Concomitant]
  6. FUROSEMIDE [Concomitant]
  7. ESPIRONOLACTONA (SPIRONOLACTONE) TABLET [Concomitant]
  8. DIGOXIN [Concomitant]

REACTIONS (3)
  - CARDIAC FAILURE CONGESTIVE [None]
  - CONDITION AGGRAVATED [None]
  - OFF LABEL USE [None]
